FAERS Safety Report 9419152 (Version 1)
Quarter: 2013Q3

REPORT INFORMATION
  Report Type: Spontaneous
  Country: US (occurrence: US)
  Receive Date: 20130725
  Receipt Date: 20130725
  Transmission Date: 20140515
  Serious: Yes (Hospitalization)
  Sender: FDA-Public Use
  Company Number: US-ELI_LILLY_AND_COMPANY-US201307005276

PATIENT
  Age: 51 Year
  Sex: Male

DRUGS (6)
  1. CYMBALTA [Suspect]
     Indication: DEPRESSION
     Dosage: 60 MG, QD
     Dates: start: 201305, end: 20130622
  2. OXYCODONE [Concomitant]
  3. MORPHINE [Concomitant]
  4. METOPROLOL [Concomitant]
  5. DOCUSATE SODIUM\SENNOSIDES [Concomitant]
  6. DIAZEPAM [Concomitant]

REACTIONS (8)
  - Blood potassium decreased [Unknown]
  - Poisoning [Unknown]
  - Vomiting [Unknown]
  - Diarrhoea [Unknown]
  - Drug withdrawal syndrome [Unknown]
  - Intentional drug misuse [Unknown]
  - Weight decreased [Unknown]
  - Abnormal dreams [Unknown]
